FAERS Safety Report 4861595-7 (Version None)
Quarter: 2005Q4

REPORT INFORMATION
  Report Type: 
  Country: None (occurrence: None)
  Receive Date: 20051216
  Receipt Date: 20051205
  Transmission Date: 20060501
  Serious: Yes (Other)
  Sender: FDA-Public Use
  Company Number: GB200512000810

PATIENT
  Age: 21 Year
  Sex: Female

DRUGS (2)
  1. FLUOXETINE [Suspect]
     Indication: POSTPARTUM DEPRESSION
     Dosage: 20 MG
     Dates: start: 20040101
  2. CERAZETTE (DESOGESTREL) [Concomitant]

REACTIONS (3)
  - EPILEPSY [None]
  - PALPITATIONS [None]
  - PHARMACEUTICAL PRODUCT COMPLAINT [None]
